FAERS Safety Report 23774608 (Version 1)
Quarter: 2024Q2

REPORT INFORMATION
  Report Type: Spontaneous
  Country: US (occurrence: None)
  Receive Date: 20240422
  Receipt Date: 20240422
  Transmission Date: 20240716
  Serious: No
  Sender: FDA-Public Use
  Company Number: None

PATIENT
  Age: 46 Year
  Sex: Female
  Weight: 78.75 kg

DRUGS (2)
  1. RASUVO [Suspect]
     Active Substance: METHOTREXATE SODIUM
     Indication: Rheumatoid arthritis
     Dosage: INTRAMUSCULAR
     Route: 030
     Dates: start: 20240320, end: 20240410
  2. RASUVO [Suspect]
     Active Substance: METHOTREXATE SODIUM
     Indication: Psoriasis

REACTIONS (5)
  - Depression [None]
  - Anxiety [None]
  - Cognitive disorder [None]
  - Aphasia [None]
  - Amnesia [None]

NARRATIVE: CASE EVENT DATE: 20240409
